FAERS Safety Report 8102834-9 (Version None)
Quarter: 2012Q1

REPORT INFORMATION
  Report Type: 
  Country: None (occurrence: None)
  Receive Date: 20120201
  Receipt Date: 20120127
  Transmission Date: 20120608
  Serious: Yes (Life-Threatening, Hospitalization)
  Sender: FDA-Public Use
  Company Number: JP-SANOFI-AVENTIS-F01200801757

PATIENT
  Age: 57 Year
  Sex: Female
  Weight: 76 kg

DRUGS (33)
  1. CLOPIDOGREL BISULFATE [Suspect]
     Dosage: DOSE TEXT: MAINTENANCE DOSE
     Route: 048
     Dates: start: 20080529
  2. SIGMART [Concomitant]
     Indication: ACUTE CORONARY SYNDROME
     Route: 048
     Dates: start: 20080529, end: 20080819
  3. TRICHLORMETHIAZIDE [Concomitant]
     Route: 048
     Dates: start: 20080924
  4. METFORMIN HCL [Concomitant]
     Route: 048
     Dates: start: 20090304
  5. ASPIRIN [Suspect]
     Route: 048
     Dates: start: 20080528
  6. ASPIRIN [Suspect]
     Indication: ACUTE CORONARY SYNDROME
     Route: 048
     Dates: start: 20080528
  7. HEPARIN [Concomitant]
     Route: 042
     Dates: start: 20080528, end: 20080528
  8. HEPARIN [Concomitant]
     Route: 042
     Dates: start: 20080528, end: 20080529
  9. VALSARTAN [Concomitant]
     Route: 048
     Dates: start: 20080528, end: 20080819
  10. OMEPRAZOLE [Concomitant]
     Route: 048
     Dates: start: 20080528, end: 20080701
  11. FAMOTIDINE [Concomitant]
     Route: 048
     Dates: start: 20080702
  12. LENDORMIN [Concomitant]
     Indication: INSOMNIA
     Route: 048
     Dates: start: 20080702
  13. AMARYL [Concomitant]
     Route: 048
     Dates: start: 20080730, end: 20080819
  14. CLOPIDOGREL BISULFATE [Suspect]
     Dosage: DOSE TEXT: MAINTENANCE DOSE
     Route: 048
     Dates: start: 20080529
  15. HEPARIN [Concomitant]
     Route: 042
     Dates: start: 20080528, end: 20080529
  16. PIOGLITAZONE HYDROCHLORIDE [Concomitant]
     Route: 048
     Dates: start: 20080529, end: 20080701
  17. SIGMART [Concomitant]
     Route: 048
     Dates: start: 20080529, end: 20080819
  18. AMARYL [Concomitant]
     Route: 048
     Dates: start: 20080820
  19. LIVALO [Concomitant]
     Route: 048
     Dates: start: 20090116
  20. SIGMART [Concomitant]
     Route: 048
     Dates: start: 20081015, end: 20081126
  21. GLYCYRON [Concomitant]
     Route: 048
     Dates: start: 20080528, end: 20080819
  22. LIVALO [Concomitant]
     Route: 048
     Dates: start: 20080528, end: 20090115
  23. DOXAZOSIN MESYLATE [Concomitant]
     Route: 048
     Dates: start: 20081126
  24. CLOPIDOGREL BISULFATE [Suspect]
     Dosage: DOSE TEXT: STARTING DOSE
     Route: 048
     Dates: start: 20080528, end: 20080528
  25. CLOPIDOGREL BISULFATE [Suspect]
     Indication: ACUTE CORONARY SYNDROME
     Dosage: DOSE TEXT: STARTING DOSE
     Route: 048
     Dates: start: 20080528, end: 20080528
  26. SIGMART [Concomitant]
     Route: 048
     Dates: start: 20080819, end: 20081014
  27. SIGMART [Concomitant]
     Route: 048
     Dates: start: 20081015, end: 20081126
  28. ADALAT [Concomitant]
     Route: 048
     Dates: start: 20080702
  29. HMG COA REDUCTASE INHIBITORS [Concomitant]
     Route: 048
     Dates: start: 20080528
  30. SIGMART [Concomitant]
     Route: 048
     Dates: start: 20080819, end: 20081014
  31. HEPARIN [Concomitant]
     Indication: ACUTE CORONARY SYNDROME
     Route: 042
     Dates: start: 20080528, end: 20080528
  32. VALSARTAN [Concomitant]
     Route: 048
     Dates: start: 20080820
  33. SENNA ALEXANDRINA [Concomitant]
     Route: 048
     Dates: start: 20080702

REACTIONS (3)
  - ANGINA PECTORIS [None]
  - DRUG INEFFECTIVE [None]
  - VASCULAR PSEUDOANEURYSM RUPTURED [None]
